FAERS Safety Report 5226761-X (Version None)
Quarter: 2007Q1

REPORT INFORMATION
  Report Type: 
  Country: None (occurrence: None)
  Receive Date: 20070130
  Receipt Date: 20070124
  Transmission Date: 20070707
  Serious: Yes (Hospitalization)
  Sender: FDA-Public Use
  Company Number: WAES 0612TWN00008

PATIENT
  Age: 79 Year
  Sex: Female

DRUGS (20)
  1. CANCIDAS [Suspect]
     Indication: CANDIDIASIS
     Route: 042
     Dates: start: 20061123, end: 20061215
  2. ACETAMINOPHEN [Concomitant]
  3. AMLODIPINE BESYLATE [Concomitant]
  4. ANTIMICROBIAL [Concomitant]
  5. AZTREONAM [Concomitant]
  6. CEFTAZIDIME [Concomitant]
  7. CIPROFLOXACIN HCL [Concomitant]
  8. FAMOTIDINE [Concomitant]
  9. FENTANYL CITRATE [Concomitant]
  10. FLUCONAZOLE [Concomitant]
  11. FLUOXETINE HCL [Concomitant]
  12. IPRATROPIUM BROMIDE [Concomitant]
  13. METHYLPREDNISOLONE SODIUM SUCCINATE [Concomitant]
  14. METRONIDAZOLE [Concomitant]
  15. NICARDIPINE HCL [Concomitant]
  16. PIPERACILLIN SODIUM (+) TAZOBACTAM SODIU [Concomitant]
  17. SULFAMETHOXAZOLE + TRIMETHOPRIM [Concomitant]
  18. TERBUTALINE SULFATE [Concomitant]
  19. TRANEXAMIC ACID [Concomitant]
  20. VANCOMYCIN HYDROCHLORIDE [Concomitant]

REACTIONS (16)
  - ALANINE AMINOTRANSFERASE INCREASED [None]
  - ASCITES [None]
  - ASPARTATE AMINOTRANSFERASE INCREASED [None]
  - BLOOD ALKALINE PHOSPHATASE INCREASED [None]
  - BLOOD BILIRUBIN INCREASED [None]
  - BLOOD LACTATE DEHYDROGENASE INCREASED [None]
  - DISEASE PROGRESSION [None]
  - ENTEROCOCCAL INFECTION [None]
  - HYPERBILIRUBINAEMIA [None]
  - JAUNDICE [None]
  - MULTIPLE-DRUG RESISTANCE [None]
  - PERITONITIS [None]
  - PLEURAL EFFUSION [None]
  - PYREXIA [None]
  - STAPHYLOCOCCAL INFECTION [None]
  - STENOTROPHOMONAS INFECTION [None]
